FAERS Safety Report 5928706-3 (Version None)
Quarter: 2008Q4

REPORT INFORMATION
  Report Type: 
  Country: None (occurrence: None)
  Receive Date: 20081023
  Receipt Date: 20081016
  Transmission Date: 20090506
  Serious: Yes (Hospitalization, Other)
  Sender: FDA-Public Use
  Company Number: US-TEVA-177880USA

PATIENT
  Age: 31 Year
  Sex: Female

DRUGS (2)
  1. DEXAMETHASONE SODIUM PHOSPHATE [Suspect]
     Indication: MULTIPLE SCLEROSIS RELAPSE
  2. DEXAMETHASONE SODIUM PHOSPHATE [Suspect]

REACTIONS (1)
  - VASCULAR OCCLUSION [None]
